FAERS Safety Report 14639426 (Version 2)
Quarter: 2018Q1

REPORT INFORMATION
  Report Type: Report from Study
  Country: US (occurrence: US)
  Receive Date: 20180315
  Receipt Date: 20180319
  Transmission Date: 20180509
  Serious: Yes (Other)
  Sender: FDA-Public Use
  Company Number: US-GILEAD-2018-0325586

PATIENT
  Age: 55 Year
  Sex: Male

DRUGS (3)
  1. TYVASO [Concomitant]
     Active Substance: TREPROSTINIL
  2. AMBRISENTAN [Suspect]
     Active Substance: AMBRISENTAN
     Indication: PRODUCT USED FOR UNKNOWN INDICATION
     Dosage: 10 MG, QD
     Route: 065
     Dates: start: 20110928
  3. REVATIO [Concomitant]
     Active Substance: SILDENAFIL CITRATE

REACTIONS (8)
  - Syncope [Not Recovered/Not Resolved]
  - Exercise tolerance decreased [Unknown]
  - Cough [Unknown]
  - Dyspnoea at rest [Unknown]
  - Hypotension [Unknown]
  - Dizziness [Unknown]
  - Chest pain [Unknown]
  - Dyspnoea exertional [Unknown]
